FAERS Safety Report 7372993-4 (Version None)
Quarter: 2011Q1

REPORT INFORMATION
  Report Type: 
  Country: None (occurrence: None)
  Receive Date: 20110324
  Receipt Date: 20110314
  Transmission Date: 20110831
  Serious: Yes (Disabling)
  Sender: FDA-Public Use
  Company Number: US-MYLANLABS-2009S1021886

PATIENT
  Sex: Male
  Weight: 78.02 kg

DRUGS (8)
  1. ATENOLOL [Concomitant]
     Indication: BLOOD PRESSURE INCREASED
     Route: 048
  2. DILANTIN [Suspect]
     Route: 048
     Dates: start: 19780101, end: 19930101
  3. PHENYTOIN SODIUM CAP [Suspect]
     Dosage: 300MG ALT WITH 400MG QOD
     Route: 048
     Dates: start: 19930101, end: 20070525
  4. PHENYTOIN SODIUM CAP [Suspect]
     Route: 048
     Dates: start: 20070527
  5. DILANTIN [Suspect]
     Indication: CONVULSION
     Route: 048
     Dates: start: 19780101, end: 19930101
  6. PHENYTOIN SODIUM CAP [Suspect]
     Indication: CONVULSION
     Dosage: 300MG ALT WITH 400MG QOD
     Route: 048
     Dates: start: 19930101, end: 20070525
  7. PHENYTOIN SODIUM CAP [Suspect]
     Route: 048
     Dates: start: 20080211
  8. PHENYTOIN SODIUM CAP [Suspect]
     Route: 048

REACTIONS (17)
  - OVERDOSE [None]
  - NYSTAGMUS [None]
  - NERVOUSNESS [None]
  - NEUROGENIC BLADDER [None]
  - ERECTILE DYSFUNCTION [None]
  - COORDINATION ABNORMAL [None]
  - CONFUSIONAL STATE [None]
  - INSOMNIA [None]
  - INCORRECT DRUG ADMINISTRATION DURATION [None]
  - TOXICITY TO VARIOUS AGENTS [None]
  - DIZZINESS [None]
  - DYSARTHRIA [None]
  - MUSCLE TWITCHING [None]
  - ANOXIA [None]
  - ANTICONVULSANT DRUG LEVEL ABOVE THERAPEUTIC [None]
  - ATAXIA [None]
  - HEADACHE [None]
